FAERS Safety Report 6406756-0 (Version None)
Quarter: 2009Q4

REPORT INFORMATION
  Report Type: 
  Country: None (occurrence: None)
  Receive Date: 20091020
  Receipt Date: 20091008
  Transmission Date: 20100525
  Serious: Yes (Hospitalization)
  Sender: FDA-Public Use
  Company Number: US-JNJFOC-20081103263

PATIENT
  Sex: Female
  Weight: 4.99 kg

DRUGS (4)
  1. INFANTS MYLICON NON-STAINING FORMULA [Suspect]
     Indication: FLATULENCE
     Dosage: 20 MG WITH EACH MEAL (APPROX 10 TIMES DAILY)
     Route: 048
  2. PREVACID [Concomitant]
  3. REGLAN [Concomitant]
  4. CAFFEINE [Concomitant]

REACTIONS (9)
  - BLOOD LACTATE DEHYDROGENASE INCREASED [None]
  - BRADYCARDIA [None]
  - COUGH [None]
  - FEEDING DISORDER OF INFANCY OR EARLY CHILDHOOD [None]
  - INFANTILE APNOEIC ATTACK [None]
  - LETHARGY [None]
  - PRODUCT QUALITY ISSUE [None]
  - RESPIRATORY DISTRESS [None]
  - VOMITING [None]
